FAERS Safety Report 4522344-5 (Version None)
Quarter: 2004Q4

REPORT INFORMATION
  Report Type: 
  Country: None (occurrence: None)
  Receive Date: 20041207
  Receipt Date: 20041124
  Transmission Date: 20050328
  Serious: Yes (Death, Hospitalization)
  Sender: FDA-Public Use
  Company Number: US_0411107718

PATIENT
  Age: 71 Year
  Sex: Female
  Weight: 62 kg

DRUGS (8)
  1. GEMCITABINE HYDROCHLORIDE-IV (GEMCITABINE) [Suspect]
     Indication: NON-SMALL CELL LUNG CANCER
     Dosage: 1000 MG/M2 OTHER
     Dates: start: 20041008
  2. PACLITAXEL [Suspect]
     Indication: NON-SMALL CELL LUNG CANCER
     Dosage: 200 MG/M2 OTHER
     Dates: start: 20041008
  3. IBUPROFEN [Concomitant]
  4. RAMIPRIL [Concomitant]
  5. PROCARDIA XL (NIFEDIPINE PA) [Concomitant]
  6. CRANBERRY [Concomitant]
  7. MULTI-VITAMIN [Concomitant]
  8. DECADRON (DEXAMETHASONE SODIUM PHOSPAHTE) [Concomitant]

REACTIONS (17)
  - BLADDER PROLAPSE [None]
  - BLOOD PHOSPHORUS DECREASED [None]
  - CLOSTRIDIUM COLITIS [None]
  - DEHYDRATION [None]
  - DIFFICULTY IN WALKING [None]
  - DYSURIA [None]
  - FACIAL PALSY [None]
  - HAEMOGLOBIN DECREASED [None]
  - HERPES ZOSTER [None]
  - HYPERPHOSPHATAEMIA [None]
  - HYPONATRAEMIA [None]
  - HYPOVOLAEMIA [None]
  - INAPPROPRIATE ANTIDIURETIC HORMONE SECRETION [None]
  - PLATELET COUNT INCREASED [None]
  - RENAL FAILURE ACUTE [None]
  - STOMATITIS [None]
  - WHITE BLOOD CELL COUNT INCREASED [None]
